FAERS Safety Report 13286670 (Version 1)
Quarter: 2017Q1

REPORT INFORMATION
  Report Type: Spontaneous
  Country: FR (occurrence: FR)
  Receive Date: 20170302
  Receipt Date: 20170302
  Transmission Date: 20170428
  Serious: Yes (Hospitalization, Other)
  Sender: FDA-Public Use
  Company Number: FR-ELI_LILLY_AND_COMPANY-FR201702009039

PATIENT
  Age: 17 Year
  Sex: Male

DRUGS (8)
  1. SOLU-MEDROL [Concomitant]
     Active Substance: METHYLPREDNISOLONE SODIUM SUCCINATE
     Indication: ACUTE LEUKAEMIA
     Dosage: UNK, UNKNOWN
     Route: 065
     Dates: start: 20160706, end: 20160725
  2. VINCRISTINE [Concomitant]
     Active Substance: VINCRISTINE
     Indication: ACUTE LEUKAEMIA
     Dosage: UNK
     Dates: start: 20160706
  3. UMULINE [Suspect]
     Active Substance: INSULIN HUMAN
     Dosage: 10 IU, EVERY 6 HRS
     Route: 042
     Dates: start: 20160711, end: 20160720
  4. KIDROLASE [Concomitant]
     Active Substance: ASPARAGINASE
     Indication: ACUTE LEUKAEMIA
     Dosage: UNK
     Dates: start: 20160706
  5. UMULINE [Suspect]
     Active Substance: INSULIN HUMAN
     Dosage: 9 IU, QD
     Route: 042
     Dates: start: 20160720, end: 20160725
  6. UMULINE [Suspect]
     Active Substance: INSULIN HUMAN
     Indication: PRODUCT USED FOR UNKNOWN INDICATION
     Dosage: 13 IU, EVERY 6 HRS
     Route: 042
     Dates: start: 20160707, end: 20160711
  7. CORTANCYL [Concomitant]
     Active Substance: PREDNISONE
     Indication: LEUKAEMIA RECURRENT
     Dosage: UNK
     Dates: start: 20160128
  8. DAUNORUBICINE [Concomitant]
     Active Substance: DAUNORUBICIN
     Indication: ACUTE LEUKAEMIA
     Dosage: UNK
     Dates: start: 20160706

REACTIONS (13)
  - Hypoglycaemia [Unknown]
  - Febrile bone marrow aplasia [Unknown]
  - Hypoglycaemia [Recovered/Resolved]
  - Blood pressure diastolic decreased [Unknown]
  - Hypoglycaemia [Unknown]
  - Blood pressure systolic decreased [Unknown]
  - Glycosuria [Unknown]
  - Dyskinesia [Recovered/Resolved]
  - Blood glucose increased [Unknown]
  - Confusional state [Unknown]
  - Hypertonia [Unknown]
  - Hypoglycaemia [Unknown]
  - Bronchopulmonary aspergillosis [Unknown]

NARRATIVE: CASE EVENT DATE: 20160710
